FAERS Safety Report 5772780-4 (Version None)
Quarter: 2008Q2

REPORT INFORMATION
  Report Type: 
  Country: None (occurrence: None)
  Receive Date: 20080611
  Receipt Date: 20080528
  Transmission Date: 20081010
  Serious: Yes (Death)
  Sender: FDA-Public Use
  Company Number: KADN20080072

PATIENT
  Age: 40 Year
  Sex: Female
  Weight: 113.3993 kg

DRUGS (1)
  1. KADIAN [Suspect]
     Dosage: 60 MG
     Dates: end: 20070625

REACTIONS (11)
  - ACCIDENTAL DEATH [None]
  - CARDIAC HYPERTROPHY [None]
  - CONGESTIVE CARDIOMYOPATHY [None]
  - DRUG SCREEN POSITIVE [None]
  - DRUG TOXICITY [None]
  - MYOCARDIAL FIBROSIS [None]
  - OVERDOSE [None]
  - PULMONARY CONGESTION [None]
  - PULMONARY OEDEMA [None]
  - SELF-MEDICATION [None]
  - WRONG DRUG ADMINISTERED [None]
